FAERS Safety Report 20836699 (Version 2)
Quarter: 2022Q2

REPORT INFORMATION
  Report Type: Spontaneous
  Country: JP (occurrence: JP)
  Receive Date: 20220517
  Receipt Date: 20220530
  Transmission Date: 20220720
  Serious: Yes (Death, Other)
  Sender: FDA-Public Use
  Company Number: JP-NOVOPROD-917056

PATIENT
  Sex: Male
  Weight: 80 kg

DRUGS (1)
  1. NOVOSEVEN [Suspect]
     Active Substance: COAGULATION FACTOR VIIA RECOMBINANT HUMAN
     Indication: Acquired haemophilia
     Dosage: 10.00MG
     Route: 042
     Dates: start: 20220418

REACTIONS (2)
  - Multiple organ dysfunction syndrome [Fatal]
  - Abdominal compartment syndrome [Unknown]

NARRATIVE: CASE EVENT DATE: 20220506
